FAERS Safety Report 23034067 (Version 1)
Quarter: 2023Q4

REPORT INFORMATION
  Report Type: Spontaneous
  Country: US (occurrence: US)
  Receive Date: 20231005
  Receipt Date: 20231005
  Transmission Date: 20240110
  Serious: Yes (Other)
  Sender: FDA-Public Use
  Company Number: US-TEVA-2023-US-2930610

PATIENT
  Age: 5 Year
  Sex: Female

DRUGS (3)
  1. PREDNISONE [Suspect]
     Active Substance: PREDNISONE
     Indication: Immunosuppressant drug therapy
     Route: 065
  2. MYCOPHENOLATE MOFETIL [Suspect]
     Active Substance: MYCOPHENOLATE MOFETIL
     Indication: Immunosuppressant drug therapy
     Route: 065
  3. TACROLIMUS [Suspect]
     Active Substance: TACROLIMUS
     Indication: Immunosuppressant drug therapy
     Route: 065

REACTIONS (9)
  - Clostridium difficile colitis [Recovering/Resolving]
  - Gastroenteritis rotavirus [Recovering/Resolving]
  - COVID-19 [Recovering/Resolving]
  - Respiratory syncytial virus infection [Recovering/Resolving]
  - Upper respiratory tract infection bacterial [Recovering/Resolving]
  - Ear infection [Recovering/Resolving]
  - Pneumonia [Recovering/Resolving]
  - Superinfection [Recovering/Resolving]
  - Seizure [Recovering/Resolving]
